FAERS Safety Report 4978919-2 (Version None)
Quarter: 2006Q2

REPORT INFORMATION
  Report Type: 
  Country: None (occurrence: None)
  Receive Date: 20060417
  Receipt Date: 20060403
  Transmission Date: 20061013
  Serious: Yes (Other)
  Sender: FDA-Public Use
  Company Number: 2006033635

PATIENT

DRUGS (3)
  1. CLINDAMYCIN PHOSPHATE [Suspect]
     Indication: ILL-DEFINED DISORDER
     Dosage: INTRAVENOUS
     Route: 042
  2. RHEUMATREX [Suspect]
     Indication: ILL-DEFINED DISORDER
     Dosage: ORAL
     Route: 048
  3. DRUG UNSPECIFIED [Concomitant]

REACTIONS (1)
  - BONE MARROW FAILURE [None]
